FAERS Safety Report 4373923-X (Version None)
Quarter: 2004Q2

REPORT INFORMATION
  Report Type: 
  Country: None (occurrence: None)
  Receive Date: 20040604
  Receipt Date: 20040520
  Transmission Date: 20050107
  Serious: No
  Sender: FDA-Public Use
  Company Number: 232411K04USA

PATIENT
  Age: 56 Year
  Sex: Female

DRUGS (8)
  1. REBIF [Suspect]
     Indication: MULTIPLE SCLEROSIS
     Dosage: 44 MCG
     Dates: start: 20030307
  2. GABAPENTIN [Concomitant]
  3. RALOXIFENE HCL [Concomitant]
  4. SIMVASTATIN [Concomitant]
  5. LANSOPRAZOLE [Concomitant]
  6. MULTIVITAMIN [Concomitant]
  7. MODAFINIL [Concomitant]
  8. SPIRONOLACTONE [Concomitant]

REACTIONS (6)
  - CARDIAC FAILURE CONGESTIVE [None]
  - CARDIOMYOPATHY [None]
  - CARDIOTOXICITY [None]
  - CHEST DISCOMFORT [None]
  - DYSPNOEA [None]
  - MITRAL VALVE INCOMPETENCE [None]
